FAERS Safety Report 19375883 (Version 2)
Quarter: 2021Q2

REPORT INFORMATION
  Report Type: Report from Study
  Country: None (occurrence: PR)
  Receive Date: 20210605
  Receipt Date: 20210621
  Transmission Date: 20210717
  Serious: Yes (Other)
  Sender: FDA-Public Use
  Company Number: PR-ABBVIE-21K-131-3934025-00

PATIENT
  Age: 58 Year
  Sex: Male
  Weight: 88.53 kg

DRUGS (1)
  1. HUMIRA [Suspect]
     Active Substance: ADALIMUMAB
     Indication: RHEUMATOID ARTHRITIS
     Route: 058
     Dates: start: 2001

REACTIONS (6)
  - Muscular weakness [Not Recovered/Not Resolved]
  - Intestinal haemorrhage [Recovering/Resolving]
  - Osteoarthritis [Recovering/Resolving]
  - Blood cholesterol abnormal [Recovering/Resolving]
  - Muscle spasms [Not Recovered/Not Resolved]
  - Diabetes mellitus [Recovering/Resolving]

NARRATIVE: CASE EVENT DATE: 2016
